FAERS Safety Report 13928468 (Version 1)
Quarter: 2017Q3

REPORT INFORMATION
  Report Type: Spontaneous
  Country: ES (occurrence: ES)
  Receive Date: 20170901
  Receipt Date: 20170901
  Transmission Date: 20171127
  Serious: Yes (Other)
  Sender: FDA-Public Use
  Company Number: ES-ROCHE-1985814

PATIENT
  Age: 7 Month
  Sex: Female

DRUGS (1)
  1. MABTHERA [Suspect]
     Active Substance: RITUXIMAB
     Indication: EVANS SYNDROME
     Route: 065

REACTIONS (5)
  - Tachycardia [Unknown]
  - Pericardial effusion [Unknown]
  - Off label use [Unknown]
  - Bronchospasm [Unknown]
  - Intentional product use issue [Unknown]
